FAERS Safety Report 4449208-X (Version None)
Quarter: 2004Q3

REPORT INFORMATION
  Report Type: 
  Country: None (occurrence: None)
  Receive Date: 20040910
  Receipt Date: 20040903
  Transmission Date: 20050211
  Serious: Yes (Hospitalization)
  Sender: FDA-Public Use
  Company Number: 1314819-2004-00016

PATIENT
  Age: 23 Year
  Sex: Female
  Weight: 54 kg

DRUGS (1)
  1. CLINDOXYL GEL/STIEFEL CANADA, INC. (DUAC TOPICAL GEL/STIEFEL (USA)) [Suspect]
     Indication: ACNE
     Dosage: QD
     Dates: start: 20040824

REACTIONS (3)
  - ERYTHEMA [None]
  - SWELLING [None]
  - WOUND SECRETION [None]
